FAERS Safety Report 5732057-X (Version None)
Quarter: 2008Q2

REPORT INFORMATION
  Report Type: 
  Country: None (occurrence: None)
  Receive Date: 20080508
  Receipt Date: 20080428
  Transmission Date: 20081010
  Serious: Yes (Other)
  Sender: FDA-Public Use
  Company Number: PHHY2008PT06722

PATIENT

DRUGS (4)
  1. BICALUTAMIDE [Concomitant]
     Indication: PROSTATE CANCER RECURRENT
     Dosage: 150 MG, QD
     Dates: start: 20050421
  2. RADIOTHERAPY [Concomitant]
  3. ANTINEOPLASTIC AGENTS [Concomitant]
  4. ZOMETA [Suspect]
     Indication: METASTASES TO BONE
     Dosage: 4 MG, UNK
     Route: 042
     Dates: start: 20050421, end: 20070801

REACTIONS (4)
  - OSTEONECROSIS [None]
  - RADIOTHERAPY [None]
  - SPINAL DISORDER [None]
  - SURGERY [None]
